FAERS Safety Report 12858874 (Version 2)
Quarter: 2016Q4

REPORT INFORMATION
  Report Type: Spontaneous
  Country: JP (occurrence: JP)
  Receive Date: 20161018
  Receipt Date: 20161110
  Transmission Date: 20170207
  Serious: Yes (Death, Hospitalization)
  Sender: FDA-Public Use
  Company Number: JP-BAXALTA-2016BXJ007255

PATIENT
  Sex: Male
  Weight: 90 kg

DRUGS (2)
  1. ADVATE [Suspect]
     Active Substance: ANTIHEMOPHILIC FACTOR, HUMAN RECOMBINANT
     Indication: RENAL HAEMORRHAGE
     Dosage: 4000 IU, 2X A DAY
     Route: 042
     Dates: start: 20160929, end: 20160929
  2. ADVATE [Suspect]
     Active Substance: ANTIHEMOPHILIC FACTOR, HUMAN RECOMBINANT
     Indication: FACTOR VIII DEFICIENCY
     Dosage: UNK
     Route: 065

REACTIONS (4)
  - Oesophageal varices haemorrhage [Fatal]
  - Renal haemorrhage [Not Recovered/Not Resolved]
  - Retroperitoneal haematoma [Not Recovered/Not Resolved]
  - Hepatic cirrhosis [Fatal]
